FAERS Safety Report 7501361-7 (Version None)
Quarter: 2011Q2

REPORT INFORMATION
  Report Type: 
  Country: None (occurrence: None)
  Receive Date: 20110524
  Receipt Date: 20110520
  Transmission Date: 20111010
  Serious: Yes (Other)
  Sender: FDA-Public Use
  Company Number: CHPA2011AU06991

PATIENT
  Sex: Female

DRUGS (2)
  1. BENEFIBER W/ WHEAT DEXTRIN [Suspect]
     Indication: BOWEL MOVEMENT IRREGULARITY
     Dosage: 2 TSP, QHS
     Route: 048
     Dates: start: 20110505, end: 20110505
  2. BENEFIBER W/ WHEAT DEXTRIN [Suspect]
     Dosage: 2 TSP, QHS
     Route: 048
     Dates: start: 20110511, end: 20110513

REACTIONS (2)
  - ABDOMINAL PAIN UPPER [None]
  - OFF LABEL USE [None]
